FAERS Safety Report 4976055-2 (Version None)
Quarter: 2006Q2

REPORT INFORMATION
  Report Type: 
  Country: None (occurrence: None)
  Receive Date: 20060412
  Receipt Date: 20060403
  Transmission Date: 20061013
  Serious: Yes (Hospitalization)
  Sender: FDA-Public Use
  Company Number: ST-2006-008925

PATIENT
  Age: 67 Year
  Sex: Male
  Weight: 50 kg

DRUGS (4)
  1. OLMETEC [Suspect]
     Indication: HYPERTENSION
     Dosage: 20 MG QD PO
     Route: 048
     Dates: end: 20050314
  2. LOXONIN [Suspect]
     Indication: PAIN
     Dosage: 60 MG TID PO
     Route: 048
     Dates: start: 20060313, end: 20060314
  3. TERNELIN [Concomitant]
  4. APLACE [Concomitant]

REACTIONS (5)
  - BRADYCARDIA [None]
  - DEHYDRATION [None]
  - PAIN [None]
  - RENAL FAILURE ACUTE [None]
  - SHOCK [None]
